FAERS Safety Report 9783870 (Version 1)
Quarter: 2013Q4

REPORT INFORMATION
  Report Type: Spontaneous
  Country: US (occurrence: US)
  Receive Date: 20131226
  Receipt Date: 20131226
  Transmission Date: 20140711
  Serious: No
  Sender: FDA-Public Use
  Company Number: US-PFIZER INC-2013365225

PATIENT
  Sex: 0

DRUGS (6)
  1. NORVASC [Suspect]
     Dosage: UNK
  2. NIFEDIPINE [Suspect]
     Dosage: UNK
  3. DARVOCET [Suspect]
     Dosage: UNK
  4. APAP [Suspect]
     Dosage: UNK
  5. CODEINE [Suspect]
     Dosage: UNK
  6. ZINC [Suspect]
     Dosage: UNK

REACTIONS (1)
  - Drug hypersensitivity [Unknown]
